FAERS Safety Report 4308185-2 (Version None)
Quarter: 2004Q1

REPORT INFORMATION
  Report Type: 
  Country: None (occurrence: None)
  Receive Date: 20040301
  Receipt Date: 20030804
  Transmission Date: 20041129
  Serious: No
  Sender: FDA-Public Use
  Company Number: US-BRISTOL-MYERS SQUIBB COMPANY-12346532

PATIENT
  Sex: Female

DRUGS (4)
  1. GLUCOPHAGE [Suspect]
     Indication: DIABETES MELLITUS
     Route: 048
  2. INSULIN [Concomitant]
  3. MULTIVITAMIN [Concomitant]
  4. ZINC SULFATE [Concomitant]

REACTIONS (2)
  - ANAEMIA [None]
  - WEIGHT DECREASED [None]
